FAERS Safety Report 9222391 (Version 1)
Quarter: 2013Q2

REPORT INFORMATION
  Report Type: Spontaneous
  Country: US (occurrence: US)
  Receive Date: 20130410
  Receipt Date: 20130410
  Transmission Date: 20140414
  Serious: Yes (Other)
  Sender: FDA-Public Use
  Company Number: US-ELI_LILLY_AND_COMPANY-US201304001118

PATIENT
  Sex: Female
  Weight: 63.49 kg

DRUGS (7)
  1. ZYPREXA [Suspect]
     Indication: SCHIZOPHRENIA
     Dosage: 1 DF, UNKNOWN
  2. RISPERDAL [Concomitant]
     Indication: SCHIZOPHRENIA
     Dosage: 1 DF, UNKNOWN
  3. ABILIFY [Concomitant]
     Indication: SCHIZOPHRENIA
     Dosage: 1 DF, UNKNOWN
  4. SEROQUEL [Concomitant]
     Indication: SCHIZOPHRENIA
     Dosage: 1 DF, UNKNOWN
  5. METOPROLOL SUCCINATE [Concomitant]
     Indication: HYPERTENSION
     Dosage: 100 MG, QD
  6. NORVASC [Concomitant]
     Indication: HYPERTENSION
     Dosage: 5 MG, QD
  7. GEODON [Concomitant]
     Indication: SCHIZOPHRENIA
     Dosage: 80 MG, QD
     Dates: start: 2008

REACTIONS (4)
  - Weight increased [Unknown]
  - Anxiety [Not Recovered/Not Resolved]
  - Fear of death [Unknown]
  - Blood cholesterol increased [Unknown]
